FAERS Safety Report 24564028 (Version 1)
Quarter: 2024Q4

REPORT INFORMATION
  Report Type: Spontaneous
  Country: ES (occurrence: ES)
  Receive Date: 20241030
  Receipt Date: 20241030
  Transmission Date: 20250114
  Serious: Yes (Death, Other)
  Sender: AMGEN
  Company Number: ES-AMGEN-ESPSP2024210944

PATIENT

DRUGS (2)
  1. ROMIPLOSTIM [Suspect]
     Active Substance: ROMIPLOSTIM
     Indication: Immune thrombocytopenia
     Dosage: UNK
     Route: 065
  2. ELTROMBOPAG [Concomitant]
     Active Substance: ELTROMBOPAG
     Indication: Immune thrombocytopenia
     Route: 065

REACTIONS (16)
  - Death [Fatal]
  - Acute myocardial infarction [Unknown]
  - Vena cava thrombosis [Unknown]
  - Ischaemic stroke [Unknown]
  - Pulmonary embolism [Unknown]
  - Treatment failure [Unknown]
  - Adverse event [Unknown]
  - Therapeutic product effect decreased [Unknown]
  - Thrombocytosis [Unknown]
  - Peripheral arterial occlusive disease [Unknown]
  - Arthralgia [Unknown]
  - Headache [Unknown]
  - Asthenia [Unknown]
  - Ocular hyperaemia [Unknown]
  - Photopsia [Unknown]
  - Gastrointestinal disorder [Unknown]
